FAERS Safety Report 9048716 (Version 1)
Quarter: 2013Q1

REPORT INFORMATION
  Report Type: Spontaneous
  Country: US (occurrence: None)
  Receive Date: 20130130
  Receipt Date: 20130130
  Transmission Date: 20140127
  Serious: Yes (Hospitalization)
  Sender: FDA-Public Use
  Company Number: None

PATIENT
  Age: 77 Year
  Sex: Female
  Weight: 105.8 kg

DRUGS (17)
  1. JANUVIA [Suspect]
     Dosage: CHRONIC
     Route: 048
  2. GLYBURIDE [Suspect]
     Dosage: CHRONIC
     Route: 048
  3. LANTUS [Suspect]
     Dosage: 8 UNITS   QHS?CHRONIC
  4. HUMALOG [Suspect]
     Dosage: CHRONIC
  5. RANITIDINE [Concomitant]
  6. KLOR-CON [Concomitant]
  7. DIOVAN [Concomitant]
  8. PANTOPRAZOLE [Concomitant]
  9. LASIX [Concomitant]
  10. LOPRESSOR [Concomitant]
  11. ASA [Concomitant]
  12. FERROUS SULFATE [Concomitant]
  13. FISH OIL [Concomitant]
  14. VIT C+D [Concomitant]
  15. BIOTIN [Concomitant]
  16. VITB12 [Concomitant]
  17. NITRO [Concomitant]

REACTIONS (3)
  - Hypoglycaemia [None]
  - Renal failure acute [None]
  - Dehydration [None]
